FAERS Safety Report 17579007 (Version 3)
Quarter: 2020Q2

REPORT INFORMATION
  Report Type: Spontaneous
  Country: JP (occurrence: JP)
  Receive Date: 20200324
  Receipt Date: 20200608
  Transmission Date: 20200713
  Serious: Yes (Hospitalization)
  Sender: FDA-Public Use
  Company Number: JP-TAKEDA-2020TJP006170

PATIENT
  Age: 80 Year
  Sex: Male

DRUGS (5)
  1. METGLUCO [Concomitant]
     Active Substance: METFORMIN HYDROCHLORIDE
     Dosage: UNK
     Route: 065
  2. LUSEFI [Concomitant]
     Active Substance: LUSEOGLIFLOZIN
     Dosage: UNK
     Route: 065
  3. LUSEFI [Concomitant]
     Active Substance: LUSEOGLIFLOZIN
     Dosage: UNK
     Route: 065
  4. NESINA [Suspect]
     Active Substance: ALOGLIPTIN BENZOATE
     Indication: DIABETES MELLITUS
     Dosage: 12.5 MILLIGRAM
     Route: 048
     Dates: start: 201907, end: 202004
  5. LIOVEL COMBINATION TABLETS LD [Suspect]
     Active Substance: ALOGLIPTIN BENZOATE\PIOGLITAZONE HYDROCHLORIDE
     Indication: PRODUCT USED FOR UNKNOWN INDICATION
     Dosage: UNK
     Route: 065

REACTIONS (2)
  - Hospitalisation [Unknown]
  - Prescribed overdose [Recovered/Resolved]

NARRATIVE: CASE EVENT DATE: 201907
